FAERS Safety Report 8276357-0 (Version None)
Quarter: 2012Q2

REPORT INFORMATION
  Report Type: 
  Country: None (occurrence: None)
  Receive Date: 20120412
  Receipt Date: 20120411
  Transmission Date: 20120825
  Serious: Yes (Other)
  Sender: FDA-Public Use
  Company Number: PHHY2012NL006337

PATIENT
  Sex: Male

DRUGS (3)
  1. ZOMETA [Suspect]
     Dosage: 4 MG/5 ML, PER 8 WEEKS
     Route: 042
     Dates: start: 20110606
  2. ZOMETA [Suspect]
     Indication: PROSTATE CANCER METASTATIC
     Dosage: 4 MG/5 ML, PER 8 WEEKS
     Route: 042
  3. ZOMETA [Suspect]
     Dosage: 4 MG/5 ML, PER 8 WEEKS
     Route: 042
     Dates: start: 20111124

REACTIONS (1)
  - TERMINAL STATE [None]
